FAERS Safety Report 18941178 (Version 3)
Quarter: 2021Q2

REPORT INFORMATION
  Report Type: Report from Study
  Country: US (occurrence: US)
  Receive Date: 20210225
  Receipt Date: 20210607
  Transmission Date: 20210717
  Serious: Yes (Hospitalization, Other)
  Sender: FDA-Public Use
  Company Number: US-TAKEDA-US202034543

PATIENT
  Sex: Male
  Weight: 104 kg

DRUGS (12)
  1. TEDUGLUTIDE [Suspect]
     Active Substance: TEDUGLUTIDE
     Dosage: 5 MILLIGRAM, QD
     Route: 058
  2. TEDUGLUTIDE [Suspect]
     Active Substance: TEDUGLUTIDE
     Dosage: 5 MILLIGRAM, QD
     Route: 058
  3. TEDUGLUTIDE [Suspect]
     Active Substance: TEDUGLUTIDE
     Dosage: 0.52 MILLIGRAM, QD
     Route: 058
     Dates: start: 20201009
  4. TEDUGLUTIDE [Suspect]
     Active Substance: TEDUGLUTIDE
     Dosage: 5 MILLIGRAM, QD
     Route: 058
  5. TEDUGLUTIDE [Suspect]
     Active Substance: TEDUGLUTIDE
     Dosage: 0.52 MILLIGRAM, QD
     Route: 058
     Dates: start: 20201009
  6. TEDUGLUTIDE [Suspect]
     Active Substance: TEDUGLUTIDE
     Indication: PRODUCT USED FOR UNKNOWN INDICATION
     Dosage: 0.52 MILLILITER, 1X/DAY:QD
     Route: 058
     Dates: start: 20201016
  7. TEDUGLUTIDE [Suspect]
     Active Substance: TEDUGLUTIDE
     Dosage: 0.52 MILLIGRAM, QD
     Route: 058
     Dates: start: 20201009
  8. TEDUGLUTIDE [Suspect]
     Active Substance: TEDUGLUTIDE
     Dosage: 5 MILLIGRAM, QD
     Route: 058
  9. TEDUGLUTIDE [Suspect]
     Active Substance: TEDUGLUTIDE
     Indication: PRODUCT USED FOR UNKNOWN INDICATION
     Dosage: 0.52 MILLILITER, 1X/DAY:QD
     Route: 058
     Dates: start: 20201016
  10. TEDUGLUTIDE [Suspect]
     Active Substance: TEDUGLUTIDE
     Indication: PRODUCT USED FOR UNKNOWN INDICATION
     Dosage: 0.52 MILLILITER, 1X/DAY:QD
     Route: 058
     Dates: start: 20201016
  11. TEDUGLUTIDE [Suspect]
     Active Substance: TEDUGLUTIDE
     Dosage: 0.52 MILLIGRAM, QD
     Route: 058
     Dates: start: 20201009
  12. TEDUGLUTIDE [Suspect]
     Active Substance: TEDUGLUTIDE
     Indication: PRODUCT USED FOR UNKNOWN INDICATION
     Dosage: 0.52 MILLILITER, 1X/DAY:QD
     Route: 058
     Dates: start: 20201016

REACTIONS (9)
  - Sepsis [Unknown]
  - Stoma complication [Recovering/Resolving]
  - Speech disorder [Recovered/Resolved]
  - Weight decreased [Unknown]
  - Memory impairment [Recovered/Resolved]
  - Somnolence [Recovered/Resolved]
  - Device related infection [Unknown]
  - Parenteral nutrition [Recovered/Resolved]
  - Weight increased [Unknown]
